FAERS Safety Report 7880713-X (Version None)
Quarter: 2011Q4

REPORT INFORMATION
  Report Type: 
  Country: None (occurrence: None)
  Receive Date: 20111101
  Receipt Date: 20111021
  Transmission Date: 20120403
  Serious: Yes (Hospitalization)
  Sender: FDA-Public Use
  Company Number: JP-JNJFOC-20111100089

PATIENT
  Sex: Male
  Weight: 135 kg

DRUGS (10)
  1. REMICADE [Suspect]
     Route: 042
     Dates: start: 20100301
  2. REMICADE [Suspect]
     Route: 042
     Dates: start: 20100809
  3. REMICADE [Suspect]
     Route: 042
     Dates: start: 20110419
  4. OLOPATADINE HCL [Concomitant]
     Indication: PUSTULAR PSORIASIS
     Route: 048
     Dates: start: 20100402
  5. REMICADE [Suspect]
     Indication: PUSTULAR PSORIASIS
     Route: 042
     Dates: start: 20110616
  6. REMICADE [Suspect]
     Route: 042
     Dates: start: 20110308
  7. PYRINAZIN [Concomitant]
     Indication: PROPHYLAXIS
     Route: 048
  8. FAMOTIDINE [Concomitant]
     Indication: PROPHYLAXIS
     Route: 048
     Dates: start: 20100222
  9. REMICADE [Suspect]
     Route: 042
     Dates: start: 20110322
  10. TALION [Concomitant]
     Indication: PUSTULAR PSORIASIS
     Route: 048
     Dates: start: 20100301

REACTIONS (1)
  - DIVERTICULITIS [None]
